FAERS Safety Report 19042438 (Version 1)
Quarter: 2021Q1

REPORT INFORMATION
  Report Type: Spontaneous
  Country: US (occurrence: US)
  Receive Date: 20210323
  Receipt Date: 20210323
  Transmission Date: 20210420
  Serious: No
  Sender: FDA-Public Use
  Company Number: US-BAUSCH-BL-2021-007598

PATIENT
  Sex: Male

DRUGS (4)
  1. DILTIAZEM. [Suspect]
     Active Substance: DILTIAZEM
     Indication: PULSE ABNORMAL
  2. MOVANTIK [Suspect]
     Active Substance: NALOXEGOL OXALATE
     Indication: PRODUCT USED FOR UNKNOWN INDICATION
     Route: 065
  3. DILTIAZEM. [Suspect]
     Active Substance: DILTIAZEM
     Indication: HEART RATE ABNORMAL
     Route: 065
  4. AMITIZA [Concomitant]
     Active Substance: LUBIPROSTONE
     Indication: PRODUCT USED FOR UNKNOWN INDICATION

REACTIONS (2)
  - Drug withdrawal syndrome [Unknown]
  - Gastrointestinal disorder [Unknown]
